FAERS Safety Report 24032638 (Version 2)
Quarter: 2024Q3

REPORT INFORMATION
  Report Type: Spontaneous
  Country: US (occurrence: US)
  Receive Date: 20240701
  Receipt Date: 20240726
  Transmission Date: 20241017
  Serious: Yes (Other)
  Sender: SANOFI AVENTIS
  Company Number: US-SA-SAC20240624000715

PATIENT
  Age: 2 Year
  Sex: Female
  Weight: 14 kg

DRUGS (1)
  1. EFLORNITHINE HYDROCHLORIDE [Suspect]
     Active Substance: EFLORNITHINE HYDROCHLORIDE
     Dosage: 10.7 ML, BID
     Route: 048
     Dates: start: 20220301

REACTIONS (6)
  - Central sleep apnoea syndrome [Recovering/Resolving]
  - Respiratory arrest [Recovering/Resolving]
  - Hyperhidrosis [Unknown]
  - Dysphagia [Unknown]
  - Rapid eye movements sleep abnormal [Unknown]
  - Obstructive sleep apnoea syndrome [Unknown]

NARRATIVE: CASE EVENT DATE: 20240430
